FAERS Safety Report 14407127 (Version 3)
Quarter: 2019Q2

REPORT INFORMATION
  Report Type: Report from Study
  Country: HR (occurrence: HR)
  Receive Date: 20180118
  Receipt Date: 20190404
  Transmission Date: 20190711
  Serious: Yes (Life-Threatening, Hospitalization)
  Sender: FDA-Public Use
  Company Number: HR-SA-2018SA012215

PATIENT
  Age: 44 Year
  Sex: Female

DRUGS (4)
  1. ATHYRAZOL [Concomitant]
     Active Substance: METHIMAZOLE
     Dosage: UNK
     Route: 065
     Dates: start: 20170424
  2. ALEMTUZUMAB [Suspect]
     Active Substance: ALEMTUZUMAB
     Indication: RELAPSING-REMITTING MULTIPLE SCLEROSIS
     Dosage: UNK UNK,UNK
     Route: 042
     Dates: start: 20110110, end: 20110114
  3. ALEMTUZUMAB [Suspect]
     Active Substance: ALEMTUZUMAB
     Dosage: UNK UNK,UNK
     Route: 042
     Dates: start: 20120126, end: 20120128
  4. ALEMTUZUMAB [Suspect]
     Active Substance: ALEMTUZUMAB
     Dosage: UNK UNK,UNK
     Route: 042
     Dates: start: 20140725, end: 20140727

REACTIONS (1)
  - Autoimmune hypothyroidism [Recovered/Resolved]

NARRATIVE: CASE EVENT DATE: 20140424
